FAERS Safety Report 17205706 (Version 2)
Quarter: 2020Q1

REPORT INFORMATION
  Report Type: Report from Study
  Country: BR (occurrence: BR)
  Receive Date: 20191227
  Receipt Date: 20200128
  Transmission Date: 20200409
  Serious: Yes (Life-Threatening, Other)
  Sender: FDA-Public Use
  Company Number: BR-ROCHE-2506022

PATIENT
  Age: 28 Year
  Sex: Male

DRUGS (3)
  1. ALLEGRA [Concomitant]
     Active Substance: FEXOFENADINE HYDROCHLORIDE
     Indication: PRODUCT USED FOR UNKNOWN INDICATION
     Route: 065
  2. XOLAIR [Suspect]
     Active Substance: OMALIZUMAB
     Indication: CHRONIC SPONTANEOUS URTICARIA
     Route: 065
     Dates: start: 20191203
  3. XOLAIR [Suspect]
     Active Substance: OMALIZUMAB
     Dosage: 2 AMPOULES OF 150 MG, EVERY 4 WEEKS
     Route: 065
     Dates: start: 20191206

REACTIONS (20)
  - Blister [Recovered/Resolved]
  - Facial asymmetry [Unknown]
  - Deformity [Unknown]
  - Angioedema [Recovered/Resolved]
  - Peripheral swelling [Not Recovered/Not Resolved]
  - Lymph node pain [Unknown]
  - Rash macular [Recovering/Resolving]
  - Skin mass [Not Recovered/Not Resolved]
  - Urticaria [Recovering/Resolving]
  - Erythema [Recovering/Resolving]
  - Arthralgia [Recovered/Resolved]
  - Pruritus [Not Recovered/Not Resolved]
  - Speech disorder [Unknown]
  - Laryngeal oedema [Recovered/Resolved]
  - Musculoskeletal stiffness [Unknown]
  - Rash erythematous [Not Recovered/Not Resolved]
  - Anaphylactic shock [Unknown]
  - Pyrexia [Not Recovered/Not Resolved]
  - Dysphonia [Unknown]
  - Torticollis [Unknown]

NARRATIVE: CASE EVENT DATE: 20191206
